FAERS Safety Report 7798293-6 (Version None)
Quarter: 2011Q4

REPORT INFORMATION
  Report Type: 
  Country: None (occurrence: None)
  Receive Date: 20111005
  Receipt Date: 20111004
  Transmission Date: 20120403
  Serious: Yes (Hospitalization)
  Sender: FDA-Public Use
  Company Number: PHHO2011ES16305

PATIENT
  Sex: Female
  Weight: 89.5 kg

DRUGS (1)
  1. TASIGNA [Suspect]
     Indication: CHRONIC MYELOID LEUKAEMIA
     Dosage: 600 MG, BID
     Route: 048
     Dates: start: 20110317, end: 20110922

REACTIONS (1)
  - ACUTE MYOCARDIAL INFARCTION [None]
